FAERS Safety Report 6054848-0 (Version None)
Quarter: 2009Q1

REPORT INFORMATION
  Report Type: 
  Country: None (occurrence: None)
  Receive Date: 20090128
  Receipt Date: 20090116
  Transmission Date: 20090719
  Serious: Yes (Hospitalization)
  Sender: FDA-Public Use
  Company Number: FR-PFIZER INC-2009157556

PATIENT

DRUGS (8)
  1. AMLOR [Suspect]
     Indication: HYPERTENSION
     Route: 048
     Dates: end: 20081010
  2. PANTOPRAZOLE SODIUM [Concomitant]
     Route: 048
  3. COAPROVEL [Concomitant]
     Route: 048
  4. SOTALEX [Concomitant]
  5. KARDEGIC [Concomitant]
  6. FLECAINE [Concomitant]
  7. SIMVASTATIN [Concomitant]
  8. TAHOR [Concomitant]
     Dates: start: 20080630

REACTIONS (1)
  - ECZEMA [None]
